FAERS Safety Report 11081818 (Version 3)
Quarter: 2015Q2

REPORT INFORMATION
  Report Type: Report from Study
  Country: US (occurrence: US)
  Receive Date: 20150501
  Receipt Date: 20150602
  Transmission Date: 20150821
  Serious: Yes (Hospitalization, Other)
  Sender: FDA-Public Use
  Company Number: US-SA-2015SA053625

PATIENT
  Age: 61 Year
  Sex: Female

DRUGS (14)
  1. SOLOSTAR [Concomitant]
     Active Substance: DEVICE
  2. MIRTAZAPINE. [Concomitant]
     Active Substance: MIRTAZAPINE
  3. ZOLOFT [Concomitant]
     Active Substance: SERTRALINE HYDROCHLORIDE
     Dates: start: 20150113
  4. LANTUS SOLOSTAR [Suspect]
     Active Substance: INSULIN GLARGINE
     Indication: TYPE 2 DIABETES MELLITUS
     Dosage: SHE WAS RUNNING OUT OF HER SUPPLY, SO SHE TOOK LESS NUMBER OF UNITS PER DAY BEFORE SHE RAN OUT
     Route: 065
     Dates: end: 20150416
  5. IBUPROFEN/HYDROCODONE [Concomitant]
  6. ATENOLOL/CHLORTALIDONE [Concomitant]
  7. ASPIRIN. [Concomitant]
     Active Substance: ASPIRIN
  8. HUMALOG [Concomitant]
     Active Substance: INSULIN LISPRO
  9. LANTUS SOLOSTAR [Suspect]
     Active Substance: INSULIN GLARGINE
     Indication: TYPE 2 DIABETES MELLITUS
     Dosage: DOSE:32 UNIT(S)
     Route: 065
  10. LANTUS SOLOSTAR [Suspect]
     Active Substance: INSULIN GLARGINE
     Indication: TYPE 2 DIABETES MELLITUS
     Dosage: DOSE:30 UNIT(S)
     Route: 065
  11. SIMVASTATIN. [Concomitant]
     Active Substance: SIMVASTATIN
  12. LORAZEPAM. [Concomitant]
     Active Substance: LORAZEPAM
  13. CALCIUM [Concomitant]
     Active Substance: CALCIUM
  14. LANTUS SOLOSTAR [Suspect]
     Active Substance: INSULIN GLARGINE
     Indication: TYPE 2 DIABETES MELLITUS
     Dosage: DOASE: 20-32 U QD DOSE:20 UNIT(S)
     Route: 065
     Dates: start: 20130305

REACTIONS (10)
  - Concussion [Unknown]
  - Pain [Not Recovered/Not Resolved]
  - Fall [Unknown]
  - Headache [Unknown]
  - Gait disturbance [Not Recovered/Not Resolved]
  - Head injury [Unknown]
  - Transient ischaemic attack [Unknown]
  - Thyroidectomy [Unknown]
  - Memory impairment [Not Recovered/Not Resolved]
  - Intentional underdose [Unknown]

NARRATIVE: CASE EVENT DATE: 20131026
